FAERS Safety Report 4579014-7 (Version None)
Quarter: 2005Q1

REPORT INFORMATION
  Report Type: 
  Country: None (occurrence: None)
  Receive Date: 20050119
  Receipt Date: 20040610
  Transmission Date: 20050727
  Serious: Yes (Other)
  Sender: FDA-Public Use
  Company Number: A03200401863

PATIENT
  Age: 78 Year
  Sex: Female
  Weight: 83.4619 kg

DRUGS (10)
  1. PLAVIX [Suspect]
     Indication: STENT PLACEMENT
     Dosage: 75  MG QD - ORAL
     Route: 048
     Dates: start: 20040516, end: 20040602
  2. STATIN (NOS) - TABLET - UNIT DOSE: UNKNOWN [Suspect]
     Dosage: ORAL
     Route: 048
     Dates: end: 20040601
  3. ACETYLSALICYLIC ACID SRT [Concomitant]
  4. ATORVASTATIN CALCIUM [Concomitant]
  5. VALSARTAN [Concomitant]
  6. OMEPRAZOLE [Concomitant]
  7. ALPRAZOLAM [Concomitant]
  8. LEVOTHYROXINE SODIUM [Concomitant]
  9. CONJUGATED ESTROGENS [Concomitant]
  10. ROSUVASTATIN CALCIUM [Concomitant]

REACTIONS (6)
  - ASTHENIA [None]
  - HAEMATOCRIT DECREASED [None]
  - OEDEMA MOUTH [None]
  - PRURITUS [None]
  - RASH [None]
  - SWOLLEN TONGUE [None]
